FAERS Safety Report 15375434 (Version 2)
Quarter: 2018Q3

REPORT INFORMATION
  Report Type: Report from Study
  Country: US (occurrence: US)
  Receive Date: 20180912
  Receipt Date: 20180913
  Transmission Date: 20181010
  Serious: Yes (Death, Hospitalization)
  Sender: FDA-Public Use
  Company Number: US-EXELIXIS-CABO-18015832

PATIENT
  Age: 63 Year
  Sex: Male

DRUGS (1)
  1. CABOMETYX [Suspect]
     Active Substance: CABOZANTINIB S-MALATE
     Indication: RENAL CANCER
     Dosage: 60 MG, QD (EMPTY STOMACH)
     Dates: start: 20180825

REACTIONS (5)
  - Fatigue [Not Recovered/Not Resolved]
  - Feeding disorder [Unknown]
  - Asthenia [Not Recovered/Not Resolved]
  - Death [Fatal]
  - Disorientation [Unknown]

NARRATIVE: CASE EVENT DATE: 2018
